FAERS Safety Report 13076566 (Version 1)
Quarter: 2016Q4

REPORT INFORMATION
  Report Type: Spontaneous
  Country: CH (occurrence: CH)
  Receive Date: 20161230
  Receipt Date: 20161230
  Transmission Date: 20170207
  Serious: Yes (Hospitalization)
  Sender: FDA-Public Use
  Company Number: CH-JNJFOC-20161225389

PATIENT
  Age: 82 Year
  Sex: Male

DRUGS (11)
  1. STILNOX [Concomitant]
     Active Substance: ZOLPIDEM TARTRATE
     Route: 065
  2. XARELTO [Suspect]
     Active Substance: RIVAROXABAN
     Indication: ATRIAL FIBRILLATION
     Route: 048
     Dates: start: 201606, end: 20161211
  3. TOREM [Concomitant]
     Active Substance: TORSEMIDE
     Route: 065
  4. VI-DE 3 [Concomitant]
     Active Substance: CHOLECALCIFEROL
     Route: 065
  5. PRADIF T [Concomitant]
     Active Substance: TAMSULOSIN HYDROCHLORIDE
     Route: 065
  6. REMERON [Concomitant]
     Active Substance: MIRTAZAPINE
     Route: 065
  7. NOVALGIN [Concomitant]
     Active Substance: METAMIZOLE SODIUM
     Dosage: MAX 4 PER DAY
     Route: 065
  8. SYMBICORT [Concomitant]
     Active Substance: BUDESONIDE\FORMOTEROL FUMARATE DIHYDRATE
     Route: 065
  9. SPIRIVA [Concomitant]
     Active Substance: TIOTROPIUM BROMIDE MONOHYDRATE
     Route: 065
  10. PANTOZOL [Concomitant]
     Active Substance: PANTOPRAZOLE SODIUM
     Route: 065
  11. ATACAND [Concomitant]
     Active Substance: CANDESARTAN CILEXETIL
     Route: 065

REACTIONS (3)
  - Dyspnoea [Recovering/Resolving]
  - Anaemia [Recovering/Resolving]
  - Melaena [Recovered/Resolved]

NARRATIVE: CASE EVENT DATE: 201612
